FAERS Safety Report 8437502-7 (Version None)
Quarter: 2012Q2

REPORT INFORMATION
  Report Type: 
  Country: None (occurrence: None)
  Receive Date: 20120614
  Receipt Date: 20120403
  Transmission Date: 20120825
  Serious: No
  Sender: FDA-Public Use
  Company Number: US-AMGEN-USASP2012021124

PATIENT
  Sex: Female

DRUGS (3)
  1. VITAMIN D                          /00318501/ [Concomitant]
  2. PROLIA [Suspect]
     Indication: OSTEOPOROSIS POSTMENOPAUSAL
     Dosage: 60 MG, Q6MO
  3. CALCIUM [Concomitant]

REACTIONS (1)
  - PAIN IN EXTREMITY [None]
